FAERS Safety Report 15191889 (Version 1)
Quarter: 2018Q3

REPORT INFORMATION
  Report Type: Spontaneous
  Country: US (occurrence: US)
  Receive Date: 20180724
  Receipt Date: 20180724
  Transmission Date: 20181010
  Serious: Yes (Hospitalization, Disabling, Other)
  Sender: FDA-Public Use
  Company Number: US-INDIVIOR LIMITED-INDV-112535-2018

PATIENT
  Age: 60 Year
  Sex: Male

DRUGS (2)
  1. SUBOXONE [Suspect]
     Active Substance: BUPRENORPHINE HYDROCHLORIDE\NALOXONE HYDROCHLORIDE
     Indication: DRUG DEPENDENCE
     Dosage: UNK, ONE WHOLE FILM
     Route: 060
  2. SUBOXONE [Suspect]
     Active Substance: BUPRENORPHINE HYDROCHLORIDE\NALOXONE HYDROCHLORIDE
     Dosage: UNK, ABOUT HALF OF A FILM
     Route: 060

REACTIONS (5)
  - Urinary retention [Recovered/Resolved]
  - Gangrene [Recovered/Resolved]
  - Localised infection [Recovered/Resolved]
  - Abdominal distension [Recovered/Resolved]
  - Wrong technique in product usage process [Recovered/Resolved]
